FAERS Safety Report 5835889-2 (Version None)
Quarter: 2008Q3

REPORT INFORMATION
  Report Type: 
  Country: None (occurrence: None)
  Receive Date: 20080806
  Receipt Date: 20080728
  Transmission Date: 20090109
  Serious: Yes (Other)
  Sender: FDA-Public Use
  Company Number: JP-ABBOTT-07P-087-0373745-00

PATIENT
  Sex: Male

DRUGS (3)
  1. LEUPROLIDE ACETATE [Suspect]
     Indication: PROSTATE CANCER STAGE II
     Route: 058
     Dates: start: 20060602, end: 20070515
  2. LEUPROLIDE ACETATE [Suspect]
     Indication: MONOCLONAL ANTIBODY CHEMOIMMUNOCONJUGATE THERAPY
  3. BICALUTAMIDE [Concomitant]
     Indication: PROSTATE CANCER STAGE II
     Route: 048
     Dates: start: 20060512

REACTIONS (5)
  - INJECTION SITE ABSCESS [None]
  - INJECTION SITE ERYTHEMA [None]
  - INJECTION SITE INDURATION [None]
  - INJECTION SITE PRURITUS [None]
  - INJECTION SITE SWELLING [None]
